FAERS Safety Report 20691575 (Version 2)
Quarter: 2022Q2

REPORT INFORMATION
  Report Type: Spontaneous
  Country: US (occurrence: US)
  Receive Date: 20220408
  Receipt Date: 20220516
  Transmission Date: 20220720
  Serious: No
  Sender: FDA-Public Use
  Company Number: US-BAUSCH-BL-2022-008419

PATIENT
  Age: 78 Year
  Sex: Male

DRUGS (3)
  1. LUMIFY [Suspect]
     Active Substance: BRIMONIDINE TARTRATE
     Indication: Ocular hyperaemia
     Route: 047
     Dates: start: 202203
  2. LUMIFY [Suspect]
     Active Substance: BRIMONIDINE TARTRATE
  3. TAMSULOSIN [Concomitant]
     Active Substance: TAMSULOSIN
     Indication: Product used for unknown indication

REACTIONS (2)
  - Drug ineffective [Unknown]
  - Product quality issue [Unknown]

NARRATIVE: CASE EVENT DATE: 20220101
